FAERS Safety Report 24294347 (Version 1)
Quarter: 2024Q3

REPORT INFORMATION
  Report Type: Report from Study
  Country: US (occurrence: US)
  Receive Date: 20240906
  Receipt Date: 20240906
  Transmission Date: 20241016
  Serious: Yes (Hospitalization)
  Sender: JOHNSON AND JOHNSON
  Company Number: US-JNJFOC-20240832701

PATIENT
  Age: 49 Year
  Sex: Female
  Weight: 65 kg

DRUGS (1)
  1. TALVEY [Suspect]
     Active Substance: TALQUETAMAB-TGVS
     Indication: Plasma cell myeloma
     Dosage: TREATMENT HELD ON 12/11/2023
     Route: 058
     Dates: start: 20231004

REACTIONS (2)
  - Blood alkaline phosphatase increased [Recovered/Resolved]
  - Inappropriate schedule of product administration [Unknown]
